FAERS Safety Report 6383221-0 (Version None)
Quarter: 2009Q3

REPORT INFORMATION
  Report Type: 
  Country: None (occurrence: None)
  Receive Date: 20090929
  Receipt Date: 20090914
  Transmission Date: 20100115
  Serious: Yes (Death, Hospitalization)
  Sender: FDA-Public Use
  Company Number: 2009AL003884

PATIENT
  Sex: Female

DRUGS (34)
  1. DIGOXIN [Suspect]
     Indication: ATRIAL FIBRILLATION
     Dosage: 0.125 MG, DAILY, PO
     Route: 048
     Dates: start: 20070220
  2. DIGOXIN [Suspect]
     Indication: ATRIAL FIBRILLATION
     Dosage: 0.25 MG, DAILY, PO
     Route: 048
     Dates: start: 20070220
  3. PREDNISONE [Concomitant]
  4. IMODIUM [Concomitant]
  5. DILTIAZEM [Concomitant]
  6. OXYGEN [Concomitant]
  7. POTASSIUM CHLORIDE [Concomitant]
  8. .. [Concomitant]
  9. BUMEX [Concomitant]
  10. ATIVAN [Concomitant]
  11. ADVAIR DISKUS 100/50 [Concomitant]
  12. NEXIUM [Concomitant]
  13. CALCIUM CARBONATE [Concomitant]
  14. ATROVENT [Concomitant]
  15. ALBUTEROL [Concomitant]
  16. ZOLOFT [Concomitant]
  17. PREMARIN [Concomitant]
  18. MULTI-VITAMIN [Concomitant]
  19. ZAROXOLYN [Concomitant]
  20. FUROSEMIDE [Concomitant]
  21. LISINOPRIL [Concomitant]
  22. ADVAIR DISKUS 100/50 [Concomitant]
  23. SERTRALINE [Concomitant]
  24. AMRIX [Concomitant]
  25. MAGNESIUM OXIDE [Concomitant]
  26. LORAZEPAM [Concomitant]
  27. METOLAZONE [Concomitant]
  28. HYDROCOD APAP [Concomitant]
  29. FERROUS SULFATE TAB [Concomitant]
  30. METOPROLOL [Concomitant]
  31. FERREX 150 [Concomitant]
  32. LEVAQUIN [Concomitant]
  33. ALENDRONATE SODIUM [Concomitant]
  34. VITAMIN D [Concomitant]

REACTIONS (27)
  - ANAEMIA [None]
  - ATRIAL FIBRILLATION [None]
  - BRADYCARDIA [None]
  - CHRONIC OBSTRUCTIVE PULMONARY DISEASE [None]
  - COR PULMONALE [None]
  - DIARRHOEA [None]
  - DIVERTICULUM [None]
  - DYSLIPIDAEMIA [None]
  - ECONOMIC PROBLEM [None]
  - EMPHYSEMA [None]
  - GASTRITIS [None]
  - GASTROOESOPHAGEAL REFLUX DISEASE [None]
  - HEPATIC STEATOSIS [None]
  - HYPERKALAEMIA [None]
  - HYPERTENSION [None]
  - HYPERTRIGLYCERIDAEMIA [None]
  - HYPONATRAEMIA [None]
  - HYPOTENSION [None]
  - INJURY [None]
  - OSTEOARTHRITIS [None]
  - OSTEOPOROSIS [None]
  - RENAL FAILURE ACUTE [None]
  - RENAL FAILURE CHRONIC [None]
  - RHINITIS ALLERGIC [None]
  - RIGHT VENTRICULAR FAILURE [None]
  - THERAPEUTIC AGENT TOXICITY [None]
  - URINARY TRACT INFECTION [None]
